FAERS Safety Report 13553546 (Version 2)
Quarter: 2017Q3

REPORT INFORMATION
  Report Type: Spontaneous
  Country: JP (occurrence: JP)
  Receive Date: 20170517
  Receipt Date: 20170710
  Transmission Date: 20171127
  Serious: Yes (Other)
  Sender: FDA-Public Use
  Company Number: PHJP2017JP015931

PATIENT
  Age: 33 Year
  Sex: Male

DRUGS (4)
  1. COSENTYX [Suspect]
     Active Substance: SECUKINUMAB
     Indication: PSORIASIS
     Dosage: 300 MG, QW
     Route: 058
     Dates: start: 20170302, end: 20170330
  2. COSENTYX [Suspect]
     Active Substance: SECUKINUMAB
     Dosage: 300 MG, 4W
     Route: 058
     Dates: start: 20170604
  3. REBAMIPIDE [Concomitant]
     Active Substance: REBAMIPIDE
     Indication: PROPHYLAXIS
     Dosage: 100 MG, TID
     Route: 048
  4. COSENTYX [Suspect]
     Active Substance: SECUKINUMAB
     Dosage: 300 MG, 4W
     Route: 058
     Dates: start: 20170511

REACTIONS (10)
  - Tooth loss [Recovered/Resolved]
  - Pain [Unknown]
  - Erysipelas [Recovered/Resolved]
  - Parotid gland enlargement [Unknown]
  - Impetigo [Unknown]
  - Skin erosion [Unknown]
  - Eczema [Unknown]
  - Staphylococcus test positive [Unknown]
  - Papule [Unknown]
  - Folliculitis [Unknown]

NARRATIVE: CASE EVENT DATE: 20170418
